FAERS Safety Report 25530506 (Version 1)
Quarter: 2025Q3

REPORT INFORMATION
  Report Type: Spontaneous
  Country: US (occurrence: US)
  Receive Date: 20250708
  Receipt Date: 20250708
  Transmission Date: 20251021
  Serious: Yes (Life-Threatening, Hospitalization, Other)
  Sender: SANOFI AVENTIS
  Company Number: US-SA-2025SA191941

PATIENT
  Age: 68 Year
  Sex: Male
  Weight: 114 kg

DRUGS (1)
  1. CABAZITAXEL [Suspect]
     Active Substance: CABAZITAXEL
     Indication: Prostate cancer
     Dosage: 20 MG/M2, Q3W
     Route: 042
     Dates: start: 20240509

REACTIONS (5)
  - Interstitial lung disease [Not Recovered/Not Resolved]
  - Pharyngeal haemorrhage [Unknown]
  - Lung opacity [Unknown]
  - Condition aggravated [Unknown]
  - Dyspnoea [Recovering/Resolving]

NARRATIVE: CASE EVENT DATE: 20250620
